FAERS Safety Report 8110750-1 (Version None)
Quarter: 2012Q1

REPORT INFORMATION
  Report Type: 
  Country: None (occurrence: None)
  Receive Date: 20120203
  Receipt Date: 20111013
  Transmission Date: 20120608
  Serious: No
  Sender: FDA-Public Use
  Company Number: US-GLAXOSMITHKLINE-A0948979A

PATIENT
  Age: 66 Year
  Sex: Female

DRUGS (4)
  1. SUPPLEMENT [Concomitant]
  2. HORIZANT [Suspect]
     Indication: RESTLESS LEGS SYNDROME
     Dosage: 600MG PER DAY
     Route: 048
     Dates: start: 20111002
  3. OXYCONTIN [Concomitant]
  4. TRAMADOL HCL [Concomitant]

REACTIONS (1)
  - DRUG INEFFECTIVE [None]
